FAERS Safety Report 23739258 (Version 2)
Quarter: 2024Q2

REPORT INFORMATION
  Report Type: Spontaneous
  Country: US (occurrence: US)
  Receive Date: 20240413
  Receipt Date: 20240419
  Transmission Date: 20240716
  Serious: No
  Sender: FDA-Public Use
  Company Number: US-ABBVIE-5715616

PATIENT
  Sex: Female

DRUGS (1)
  1. RESTASIS [Suspect]
     Active Substance: CYCLOSPORINE
     Indication: Product used for unknown indication
     Dosage: FORM STRENGTH- 0.5MG/ML
     Route: 047
     Dates: start: 202403

REACTIONS (8)
  - Photophobia [Recovering/Resolving]
  - Unevaluable event [Unknown]
  - Anxiety [Recovering/Resolving]
  - Pain [Not Recovered/Not Resolved]
  - Illness [Unknown]
  - Eye pain [Unknown]
  - Pain [Recovered/Resolved]
  - Pain in extremity [Unknown]

NARRATIVE: CASE EVENT DATE: 20240101
